FAERS Safety Report 4899891-X (Version None)
Quarter: 2006Q1

REPORT INFORMATION
  Report Type: 
  Country: None (occurrence: None)
  Receive Date: 20060118
  Receipt Date: 20050906
  Transmission Date: 20060701
  Serious: No
  Sender: FDA-Public Use
  Company Number: 2005001837

PATIENT
  Age: 73 Year
  Sex: Female

DRUGS (1)
  1. TARCEVA [Suspect]
     Indication: LUNG NEOPLASM MALIGNANT
     Dosage: 150MG (QD), ORAL
     Route: 048
     Dates: start: 20050621

REACTIONS (1)
  - PAIN OF SKIN [None]
